FAERS Safety Report 5315143-8 (Version None)
Quarter: 2007Q2

REPORT INFORMATION
  Report Type: 
  Country: None (occurrence: None)
  Receive Date: 20070427
  Receipt Date: 20070420
  Transmission Date: 20071010
  Serious: Yes (Other)
  Sender: FDA-Public Use
  Company Number: 200704AGG00621

PATIENT
  Age: 75 Year
  Sex: Male

DRUGS (1)
  1. TIROFIBAN HYDROCHLORIDE (TIROFIBAN HCI) 10.5 ML [Suspect]
     Indication: ACUTE MYOCARDIAL INFARCTION
     Dosage: INTRAVENOUS BOLUS
     Route: 040
     Dates: start: 20070226, end: 20070226

REACTIONS (2)
  - CORONARY ARTERY THROMBOSIS [None]
  - DRUG INEFFECTIVE [None]
